FAERS Safety Report 10204282 (Version 1)
Quarter: 2014Q2

REPORT INFORMATION
  Report Type: Spontaneous
  Country: AU (occurrence: AU)
  Receive Date: 20140529
  Receipt Date: 20140529
  Transmission Date: 20141212
  Serious: Yes (Other)
  Sender: FDA-Public Use
  Company Number: AU-ASTRAZENECA-2014SE35581

PATIENT
  Age: 53 Year
  Sex: Male
  Weight: 86 kg

DRUGS (3)
  1. CRESTOR [Suspect]
     Route: 048
  2. CRESTOR [Suspect]
     Route: 048
     Dates: start: 20140316, end: 20140326
  3. MICARDIS [Concomitant]

REACTIONS (1)
  - Suicidal ideation [Not Recovered/Not Resolved]
